FAERS Safety Report 8709153 (Version 4)
Quarter: 2013Q1

REPORT INFORMATION
  Report Type: Spontaneous
  Country: US (occurrence: US)
  Receive Date: 20120806
  Receipt Date: 20130307
  Transmission Date: 20140127
  Serious: Yes (Hospitalization, Other)
  Sender: FDA-Public Use
  Company Number: US-ASTRAZENECA-2012SE53394

PATIENT
  Age: 71 Year
  Sex: Female
  Weight: 44 kg

DRUGS (1)
  1. TOPROL XL [Suspect]
     Route: 048

REACTIONS (4)
  - Fall [Recovering/Resolving]
  - Device dislocation [Unknown]
  - Malaise [Unknown]
  - Dizziness [Unknown]
